FAERS Safety Report 17978629 (Version 2)
Quarter: 2020Q3

REPORT INFORMATION
  Report Type: Other
  Country: US (occurrence: US)
  Receive Date: 20200703
  Receipt Date: 20200713
  Transmission Date: 20201103
  Serious: Yes (Hospitalization, Disabling, Other)
  Sender: FDA-Public Use
  Company Number: US-ROCHE-2628085

PATIENT
  Age: 36 Year
  Sex: Female
  Weight: 53 kg

DRUGS (17)
  1. PREDNISONE. [Concomitant]
     Active Substance: PREDNISONE
  2. TOPROL XL [Concomitant]
     Active Substance: METOPROLOL SUCCINATE
     Dosage: VIA FEEDING TUBE ;ONGOING: NO
     Route: 050
  3. FISH OIL [Concomitant]
     Active Substance: FISH OIL
     Dosage: ONGOING NO
  4. VENLAFAXINE [Concomitant]
     Active Substance: VENLAFAXINE HYDROCHLORIDE
  5. BISOPROLOL [Concomitant]
     Active Substance: BISOPROLOL
     Route: 048
  6. TURMERIC [Concomitant]
     Active Substance: HERBALS\TURMERIC
  7. GABAPENTIN. [Concomitant]
     Active Substance: GABAPENTIN
     Indication: NEURALGIA
     Dosage: VIA FEEDING TUBE ;ONGOING: YES
     Route: 050
  8. VITAMIN C [Concomitant]
     Active Substance: ASCORBIC ACID
  9. TOLTERODINE [Concomitant]
     Active Substance: TOLTERODINE
  10. ELIQUIS [Concomitant]
     Active Substance: APIXABAN
  11. OCREVUS [Suspect]
     Active Substance: OCRELIZUMAB
     Indication: PROGRESSIVE MULTIPLE SCLEROSIS
     Route: 042
     Dates: start: 20181201, end: 201912
  12. DANTROLENE. [Concomitant]
     Active Substance: DANTROLENE SODIUM
     Indication: MUSCLE SPASTICITY
     Dosage: VIA FEEDING TUBE ;ONGOING: YES
  13. LIDOCAINE. [Concomitant]
     Active Substance: LIDOCAINE
     Indication: MUSCLE SPASMS
     Dosage: ONGOING  YES
     Route: 062
  14. KEPPRA [Concomitant]
     Active Substance: LEVETIRACETAM
  15. CLONAZEPAM. [Concomitant]
     Active Substance: CLONAZEPAM
     Dosage: VIA FEEDING TUBE ;ONGOING: YES
     Route: 050
  16. TYLENOL [Concomitant]
     Active Substance: ACETAMINOPHEN
     Dosage: EVERY 4 HOURS AS NEEDED VIA FEEDING TUBE ;ONGOING: UNKNOWN
     Route: 050
  17. BOTOX [Concomitant]
     Active Substance: ONABOTULINUMTOXINA
     Dosage: ONGOING YES

REACTIONS (10)
  - Depression [Unknown]
  - Asthenia [Not Recovered/Not Resolved]
  - Blood pressure decreased [Recovered/Resolved]
  - Aphasia [Not Recovered/Not Resolved]
  - Pulmonary embolism [Unknown]
  - Herpes virus infection [Unknown]
  - Central nervous system lymphoma [Not Recovered/Not Resolved]
  - Bladder disorder [Not Recovered/Not Resolved]
  - Petit mal epilepsy [Unknown]
  - Bedridden [Not Recovered/Not Resolved]

NARRATIVE: CASE EVENT DATE: 202005
